FAERS Safety Report 19162506 (Version 1)
Quarter: 2021Q2

REPORT INFORMATION
  Report Type: Spontaneous
  Country: DE (occurrence: DE)
  Receive Date: 20210421
  Receipt Date: 20210421
  Transmission Date: 20210717
  Serious: Yes (Hospitalization, Other)
  Sender: FDA-Public Use
  Company Number: DE-TEVA-2021-DE-1901926

PATIENT
  Age: 86 Year
  Sex: Female

DRUGS (2)
  1. PROPAFENON [Suspect]
     Active Substance: PROPAFENONE
     Dosage: 150 MG, 1?1?1?1, UNIT DOSE: 600MG
  2. PRADAXA [Concomitant]
     Active Substance: DABIGATRAN ETEXILATE MESYLATE
     Dosage: 110 MG, 1?0?1?0

REACTIONS (5)
  - Bradycardia [Unknown]
  - Electrocardiogram abnormal [Unknown]
  - Sinus arrest [Unknown]
  - Dizziness [Unknown]
  - Palpitations [Unknown]
